FAERS Safety Report 11745978 (Version 3)
Quarter: 2016Q1

REPORT INFORMATION
  Report Type: Spontaneous
  Country: US (occurrence: US)
  Receive Date: 20151117
  Receipt Date: 20160318
  Transmission Date: 20160525
  Serious: No
  Sender: FDA-Public Use
  Company Number: US-PFIZER INC-2015377851

PATIENT
  Age: 64 Year
  Sex: Female
  Weight: 108 kg

DRUGS (6)
  1. MINOCYCLINE [Concomitant]
     Active Substance: MINOCYCLINE\MINOCYCLINE HYDROCHLORIDE
     Dosage: UNK, 2X/DAY
     Route: 048
  2. VERAPAMIL [Concomitant]
     Active Substance: VERAPAMIL HYDROCHLORIDE
     Indication: BLOOD PRESSURE ABNORMAL
     Dosage: 250 MG, 1X/DAY
     Route: 048
     Dates: start: 1994
  3. VITAMIN B12 [Concomitant]
     Active Substance: CYANOCOBALAMIN
     Indication: MIGRAINE
     Dosage: UNK, EVERY 2 WEEKS
     Route: 030
  4. LYRICA [Suspect]
     Active Substance: PREGABALIN
     Indication: NERVE INJURY
     Dosage: 75 MG, 1X/DAY, IN THE EVENING
     Route: 048
     Dates: start: 20151029
  5. VITAMIN B12 [Concomitant]
     Active Substance: CYANOCOBALAMIN
     Indication: VITAMIN B12 DEFICIENCY
     Dosage: UNK, ALTERNATE DAY
     Route: 030
     Dates: start: 2002
  6. MINOCYCLINE [Concomitant]
     Active Substance: MINOCYCLINE\MINOCYCLINE HYDROCHLORIDE
     Indication: CARBUNCLE
     Dosage: UNK, 1X/DAY
     Route: 048
     Dates: start: 1989

REACTIONS (1)
  - Drug effect incomplete [Unknown]
